FAERS Safety Report 7003897-4 (Version None)
Quarter: 2010Q3

REPORT INFORMATION
  Report Type: 
  Country: None (occurrence: None)
  Receive Date: 20100920
  Receipt Date: 20091216
  Transmission Date: 20110219
  Serious: No
  Sender: FDA-Public Use
  Company Number: US-WYE-H12686009

PATIENT
  Sex: Female
  Weight: 74.91 kg

DRUGS (4)
  1. PRISTIQ [Suspect]
     Indication: DEPRESSION
     Route: 048
     Dates: start: 20090601
  2. PRISTIQ [Suspect]
     Indication: ANXIETY
  3. NIFEDIPINE [Concomitant]
  4. XANAX [Concomitant]

REACTIONS (2)
  - BLOOD PRESSURE INCREASED [None]
  - FLATULENCE [None]
